FAERS Safety Report 16913237 (Version 1)
Quarter: 2019Q4

REPORT INFORMATION
  Report Type: Spontaneous
  Country: US (occurrence: US)
  Receive Date: 20191014
  Receipt Date: 20191014
  Transmission Date: 20200122
  Serious: No
  Sender: FDA-Public Use
  Company Number: US-BAYER-2019-183245

PATIENT
  Sex: Female

DRUGS (1)
  1. MIRENA [Suspect]
     Active Substance: LEVONORGESTREL
     Indication: GENITAL HAEMORRHAGE
     Dosage: 20 MCG/24HR, CONT
     Route: 015
     Dates: start: 201909

REACTIONS (4)
  - Product use in unapproved indication [None]
  - Off label use [None]
  - Drug effective for unapproved indication [None]
  - Hepatic enzyme increased [None]

NARRATIVE: CASE EVENT DATE: 201909
